FAERS Safety Report 11791041 (Version 1)
Quarter: 2015Q4

REPORT INFORMATION
  Report Type: Spontaneous
  Country: US (occurrence: US)
  Receive Date: 20151201
  Receipt Date: 20151201
  Transmission Date: 20160305
  Serious: No
  Sender: FDA-Public Use
  Company Number: US-SA-2015SA120312

PATIENT
  Age: 49 Year
  Sex: Male

DRUGS (1)
  1. RENVELA [Suspect]
     Active Substance: SEVELAMER CARBONATE
     Indication: HYPERPHOSPHATAEMIA
     Dosage: 800 MG TABLET?FREQUENCY 4-5 WITH?MEALS
     Route: 048
     Dates: start: 20140611, end: 20150723

REACTIONS (2)
  - Abdominal distension [Not Recovered/Not Resolved]
  - Bezoar [Not Recovered/Not Resolved]
